FAERS Safety Report 9337483 (Version 2)
Quarter: 2013Q3

REPORT INFORMATION
  Report Type: Spontaneous
  Country: IT (occurrence: IT)
  Receive Date: 20130607
  Receipt Date: 20130710
  Transmission Date: 20140515
  Serious: Yes (Hospitalization)
  Sender: FDA-Public Use
  Company Number: IT-009507513-1306ITA003170

PATIENT
  Age: 84 Year
  Sex: Female

DRUGS (4)
  1. REMERON [Suspect]
     Indication: DEPRESSION
     Dosage: 15 MG, DIALY
     Route: 048
     Dates: start: 20130411, end: 20130415
  2. MINIAS [Concomitant]
     Indication: DEPRESSION
     Dosage: 30 MG,DAILY
     Route: 048
     Dates: end: 20130415
  3. MINIAS [Concomitant]
     Dosage: 20 MG, DAILY
     Route: 048
     Dates: start: 20130415
  4. HALCION [Concomitant]
     Indication: DEPRESSION
     Dosage: 250 MICROGRAM, UNK

REACTIONS (3)
  - Vertigo [Recovering/Resolving]
  - Nausea [Recovering/Resolving]
  - Vomiting [Recovering/Resolving]
